FAERS Safety Report 7320374-1 (Version None)
Quarter: 2011Q1

REPORT INFORMATION
  Report Type: 
  Country: None (occurrence: None)
  Receive Date: 20110228
  Receipt Date: 20110224
  Transmission Date: 20110831
  Serious: Yes (Hospitalization)
  Sender: FDA-Public Use
  Company Number: A0886594A

PATIENT
  Age: 55 Year
  Sex: Male

DRUGS (1)
  1. ROSIGLITAZONE MALEATE [Suspect]
     Route: 048
     Dates: start: 20000216, end: 20060316

REACTIONS (5)
  - CARDIAC FAILURE [None]
  - CARDIAC OPERATION [None]
  - MYOCARDIAL INFARCTION [None]
  - WEIGHT INCREASED [None]
  - PULMONARY THROMBOSIS [None]
